FAERS Safety Report 5058284-5 (Version None)
Quarter: 2006Q3

REPORT INFORMATION
  Report Type: 
  Country: None (occurrence: None)
  Receive Date: 20060721
  Receipt Date: 20060630
  Transmission Date: 20061208
  Serious: Yes (Hospitalization)
  Sender: FDA-Public Use
  Company Number: 2006UW13863

PATIENT
  Age: 21553 Day
  Sex: Male
  Weight: 85.9 kg

DRUGS (16)
  1. CRESTOR [Suspect]
     Indication: BLOOD CHOLESTEROL INCREASED
     Route: 048
     Dates: start: 20040418, end: 20051007
  2. ALCOHOL [Suspect]
  3. VANCOMYCIN [Suspect]
  4. PRAVACHOL [Concomitant]
     Dates: start: 20040101, end: 20040401
  5. DITROPAN XL [Concomitant]
  6. HYDROCODONE [Concomitant]
     Dates: start: 20050509
  7. NAPROXEN [Concomitant]
  8. DETROL [Concomitant]
  9. DIOVAN [Concomitant]
  10. ASPIRIN [Concomitant]
  11. ELMIRON [Concomitant]
     Dates: start: 20040416
  12. HYDROXYZINE HYDROCHLORIDE [Concomitant]
     Dates: start: 20040616
  13. DOXEPIN [Concomitant]
     Dates: start: 20040623
  14. PIROXICAM [Concomitant]
     Dates: start: 20040629
  15. IONIL-T [Concomitant]
     Dates: start: 20040716
  16. CLOBEX [Concomitant]
     Route: 061
     Dates: start: 20040827

REACTIONS (39)
  - ANAEMIA [None]
  - ATELECTASIS [None]
  - BLOOD ALCOHOL INCREASED [None]
  - BLOOD CALCIUM DECREASED [None]
  - BLOOD CHLORIDE DECREASED [None]
  - BLOOD MAGNESIUM DECREASED [None]
  - BLOOD POTASSIUM DECREASED [None]
  - BLOOD PRESSURE INCREASED [None]
  - CACHEXIA [None]
  - CARPAL TUNNEL SYNDROME [None]
  - CATHETER BACTERAEMIA [None]
  - CATHETER RELATED INFECTION [None]
  - CONTRAST MEDIA REACTION [None]
  - CONVULSION [None]
  - DILATATION ATRIAL [None]
  - DRUG HYPERSENSITIVITY [None]
  - GRAND MAL CONVULSION [None]
  - HAEMODIALYSIS [None]
  - HYPERGLYCAEMIA [None]
  - HYPERPHOSPHATAEMIA [None]
  - HYPONATRAEMIA [None]
  - LUNG CONSOLIDATION [None]
  - MYOCARDIAL INFARCTION [None]
  - MYOCARDIAL ISCHAEMIA [None]
  - NEUROLEPTIC MALIGNANT SYNDROME [None]
  - NEUROPATHY PERIPHERAL [None]
  - PARALYSIS [None]
  - RASH [None]
  - RED MAN SYNDROME [None]
  - RENAL CYST [None]
  - RENAL FAILURE ACUTE [None]
  - RENAL TUBULAR NECROSIS [None]
  - RHABDOMYOLYSIS [None]
  - STAPHYLOCOCCAL BACTERAEMIA [None]
  - STAPHYLOCOCCAL INFECTION [None]
  - ULNAR NERVE PALSY [None]
  - VENTRICULAR EXTRASYSTOLES [None]
  - VENTRICULAR HYPERTROPHY [None]
  - WEIGHT DECREASED [None]
